FAERS Safety Report 7978583-4 (Version None)
Quarter: 2011Q4

REPORT INFORMATION
  Report Type: 
  Country: None (occurrence: None)
  Receive Date: 20111205
  Receipt Date: 20111117
  Transmission Date: 20120403
  Serious: Yes (Hospitalization)
  Sender: FDA-Public Use
  Company Number: 056-C5013-11111228

PATIENT
  Age: 69 Year
  Sex: Male
  Weight: 84 kg

DRUGS (10)
  1. VITAMIN B12 (CYANOCOBALAMIN) (UNKNOWN) [Concomitant]
  2. THALIDOMIDE [Suspect]
     Indication: MULTIPLE MYELOMA
     Dosage: 200 MG, PO
     Route: 048
     Dates: start: 20090611, end: 20101216
  3. SPECIAFOLDINE (FOLIC ACID) (UNKNOWN) [Concomitant]
  4. ACETAMINOPHEN [Concomitant]
  5. PHENOTYPE TRANSFUSION (BLOOD TRANSFUSION, AUXILIARY PRODUCTS) (UNKNOWN [Concomitant]
  6. LEUKOCYTES TRANSFUSION (BLOOD TRANSFUSION, AUXILIARY PRODUCTS) (UNKNOW [Concomitant]
  7. MELPHALAN HYDROCHLORIDE [Suspect]
     Indication: MULTIPLE MYELOMA
     Dosage: 22 MG
     Dates: start: 20090611, end: 20101108
  8. PREDNISONE [Suspect]
     Indication: MULTIPLE MYELOMA
     Dosage: 170 MG
     Dates: start: 20090611, end: 20101108
  9. COKENZEN (BLOPRESS PLUS) [Concomitant]
  10. PACKED RED CELLS (RED BLOOD CELLS) (UNKNOWN) [Concomitant]

REACTIONS (3)
  - ACUTE MYELOID LEUKAEMIA [None]
  - THROMBOCYTOPENIA [None]
  - CATARACT [None]
